FAERS Safety Report 14746277 (Version 3)
Quarter: 2018Q3

REPORT INFORMATION
  Report Type: Spontaneous
  Country: BR (occurrence: BR)
  Receive Date: 20180411
  Receipt Date: 20180913
  Transmission Date: 20181010
  Serious: Yes (Other)
  Sender: FDA-Public Use
  Company Number: BR-CELLTRION INC.-2017BR013224

PATIENT

DRUGS (3)
  1. REMSIMA [Suspect]
     Active Substance: INFLIXIMAB
     Indication: PRODUCT USED FOR UNKNOWN INDICATION
     Dosage: UNK
     Route: 065
     Dates: start: 20170607, end: 20170607
  2. REMSIMA [Suspect]
     Active Substance: INFLIXIMAB
     Dosage: UNK
     Route: 065
     Dates: start: 20180424, end: 20180424
  3. REMSIMA [Suspect]
     Active Substance: INFLIXIMAB
     Dosage: UNK
     Route: 065
     Dates: start: 20180327, end: 20180327

REACTIONS (9)
  - Haematochezia [Unknown]
  - Gastrointestinal pain [Unknown]
  - Malaise [Unknown]
  - Back pain [Unknown]
  - Drug dose omission [Unknown]
  - Toothache [Unknown]
  - Haemorrhage [Unknown]
  - Abdominal pain [Unknown]
  - Pain [Not Recovered/Not Resolved]

NARRATIVE: CASE EVENT DATE: 20170926
